FAERS Safety Report 7356055-8 (Version None)
Quarter: 2011Q1

REPORT INFORMATION
  Report Type: 
  Country: None (occurrence: None)
  Receive Date: 20110316
  Receipt Date: 20110308
  Transmission Date: 20110831
  Serious: Yes (Hospitalization)
  Sender: FDA-Public Use
  Company Number: US-ELI_LILLY_AND_COMPANY-US201103002749

PATIENT
  Sex: Male

DRUGS (4)
  1. ZYPREXA RELPREVV [Suspect]
     Indication: SCHIZOAFFECTIVE DISORDER
     Dosage: 405 MG, UNKNOWN
     Dates: start: 20110217
  2. HALDOL [Concomitant]
     Dosage: 50 MG, UNKNOWN
     Route: 030
  3. TEGRETOL [Concomitant]
     Dosage: 600 MG, UNKNOWN
  4. COGENTIN [Concomitant]
     Dosage: 1 D/F, 2/D

REACTIONS (1)
  - HOSPITALISATION [None]
